FAERS Safety Report 8102547-3 (Version None)
Quarter: 2012Q1

REPORT INFORMATION
  Report Type: 
  Country: None (occurrence: None)
  Receive Date: 20120201
  Receipt Date: 20120124
  Transmission Date: 20120608
  Serious: Yes (Hospitalization)
  Sender: FDA-Public Use
  Company Number: US-BAYER-2012-008941

PATIENT
  Age: 36 Year
  Sex: Female
  Weight: 77.551 kg

DRUGS (4)
  1. IBUPROFEN [Concomitant]
     Route: 048
  2. YAZ [Suspect]
  3. LORTAB [Concomitant]
     Route: 048
  4. FLEXERIL [Concomitant]
     Route: 048

REACTIONS (2)
  - PULMONARY EMBOLISM [None]
  - CHEST PAIN [None]
